FAERS Safety Report 8226510-7 (Version None)
Quarter: 2012Q1

REPORT INFORMATION
  Report Type: 
  Country: None (occurrence: None)
  Receive Date: 20120322
  Receipt Date: 20120312
  Transmission Date: 20120608
  Serious: Yes (Other)
  Sender: FDA-Public Use
  Company Number: TN-BIOGENIDEC-2012BI008953

PATIENT
  Age: 26 Year
  Sex: Female
  Weight: 54 kg

DRUGS (7)
  1. ASCORBIC ACID [Concomitant]
     Route: 048
     Dates: start: 20090101
  2. VITAMIN E [Concomitant]
     Route: 048
     Dates: start: 20090101
  3. VITAMIN B COMPLEX CAP [Concomitant]
     Route: 048
     Dates: start: 20090101
  4. TYSABRI [Suspect]
     Indication: RELAPSING-REMITTING MULTIPLE SCLEROSIS
     Route: 042
     Dates: start: 20090401, end: 20120303
  5. VITAMIN D [Concomitant]
     Route: 048
     Dates: start: 20090101
  6. AMANTADINE HCL [Concomitant]
     Route: 048
     Dates: start: 20100101
  7. CALCIUM CARBONATE [Concomitant]
     Route: 048
     Dates: start: 20090101

REACTIONS (2)
  - PROGRESSIVE MULTIFOCAL LEUKOENCEPHALOPATHY [None]
  - MENTAL DISORDER [None]
